FAERS Safety Report 4392816-5 (Version None)
Quarter: 2004Q3

REPORT INFORMATION
  Report Type: 
  Country: None (occurrence: None)
  Receive Date: 20040702
  Receipt Date: 20040413
  Transmission Date: 20050211
  Serious: Yes (Other)
  Sender: FDA-Public Use
  Company Number: 2004UW05108

PATIENT
  Age: 54 Year
  Sex: Male
  Weight: 103.8737 kg

DRUGS (3)
  1. CRESTOR [Suspect]
     Indication: HYPERLIPIDAEMIA
     Dosage: 20 MG DAILY PO
     Route: 048
     Dates: start: 20031022, end: 20040219
  2. LIPITOR [Concomitant]
  3. UNSPECIFIED MEDICATIONS [Concomitant]

REACTIONS (1)
  - GYNAECOMASTIA [None]
